FAERS Safety Report 24712045 (Version 1)
Quarter: 2024Q4

REPORT INFORMATION
  Report Type: Report from Study
  Country: US (occurrence: US)
  Receive Date: 20241209
  Receipt Date: 20241209
  Transmission Date: 20250115
  Serious: Yes (Hospitalization, Other)
  Sender: ABBVIE
  Company Number: US-ABBVIE-6032587

PATIENT
  Age: 49 Year
  Sex: Female

DRUGS (1)
  1. RINVOQ [Suspect]
     Active Substance: UPADACITINIB
     Indication: Crohn^s disease
     Route: 048
     Dates: start: 20240201, end: 20240915

REACTIONS (5)
  - Sepsis [Recovering/Resolving]
  - Rehabilitation therapy [Unknown]
  - Abdominal abscess [Unknown]
  - Device dislocation [Unknown]
  - Fistula [Unknown]

NARRATIVE: CASE EVENT DATE: 20240101
